FAERS Safety Report 6960629-3 (Version None)
Quarter: 2010Q3

REPORT INFORMATION
  Report Type: 
  Country: None (occurrence: None)
  Receive Date: 20100901
  Receipt Date: 20100819
  Transmission Date: 20110219
  Serious: Yes (Hospitalization)
  Sender: FDA-Public Use
  Company Number: US-ELI_LILLY_AND_COMPANY-US201008007147

PATIENT
  Sex: Female

DRUGS (6)
  1. FORTEO [Suspect]
     Indication: OSTEOPOROSIS
     Dosage: 20 UG, DAILY (1/D)
  2. NEXIUM [Concomitant]
     Dosage: UNK, DAILY (1/D)
  3. POTASSIUM [Concomitant]
  4. CALCIUM [Concomitant]
  5. VITAMIN D3 [Concomitant]
  6. CENTRUM SILVER [Concomitant]

REACTIONS (2)
  - ARTHRALGIA [None]
  - KNEE ARTHROPLASTY [None]
